FAERS Safety Report 9591406 (Version 1)
Quarter: 2013Q4

REPORT INFORMATION
  Report Type: Spontaneous
  Country: US (occurrence: US)
  Receive Date: 20131003
  Receipt Date: 20131003
  Transmission Date: 20140711
  Serious: No
  Sender: FDA-Public Use
  Company Number: US-AMGEN-USASP2012080020

PATIENT
  Age: 46 Year
  Sex: Male
  Weight: 99.77 kg

DRUGS (11)
  1. ENBREL [Suspect]
     Indication: RHEUMATOID ARTHRITIS
     Dosage: 50 MG, QWK
     Route: 058
  2. METFORMIN [Concomitant]
     Dosage: 850 MG, UNK
  3. GLIMEPIRIDE [Concomitant]
     Dosage: 4 MG, UNK
  4. TYLENOL WITH CODEINE [Concomitant]
     Dosage: UNK
  5. PROTONIX [Concomitant]
     Dosage: 20 MG, UNK
  6. FISH OIL [Concomitant]
     Dosage: UNK
  7. LIPITOR [Concomitant]
     Dosage: 40 MG, UNK
  8. FOLIC ACID [Concomitant]
     Dosage: UNK
  9. PREDNISONE [Concomitant]
     Dosage: 10 MG, UNK
  10. LISINOPRIL [Concomitant]
     Dosage: 5 MG, UNK
  11. METHOTREXATE [Concomitant]
     Dosage: 2.5 MG, UNK

REACTIONS (2)
  - Bronchitis [Unknown]
  - Upper respiratory tract infection [Unknown]
